FAERS Safety Report 9421421 (Version 1)
Quarter: 2013Q3

REPORT INFORMATION
  Report Type: Report from Study
  Country: US (occurrence: US)
  Receive Date: 20130725
  Receipt Date: 20130725
  Transmission Date: 20140515
  Serious: Yes (Death)
  Sender: FDA-Public Use
  Company Number: US-ROCHE-1253464

PATIENT
  Sex: Female

DRUGS (2)
  1. XELODA [Suspect]
     Indication: COLORECTAL CANCER STAGE IV
     Route: 065
  2. XELODA [Suspect]
     Indication: COLON CANCER STAGE IV

REACTIONS (1)
  - Death [Fatal]
